FAERS Safety Report 22603215 (Version 1)
Quarter: 2023Q2

REPORT INFORMATION
  Report Type: Other
  Country: PK (occurrence: None)
  Receive Date: 20230615
  Receipt Date: 20230615
  Transmission Date: 20230722
  Serious: Yes (Hospitalization, Other)
  Sender: FDA-Public Use
  Company Number: PK-Square-000147

PATIENT
  Age: 23 Year
  Sex: Female

DRUGS (8)
  1. CALCIUM CITRATE [Suspect]
     Active Substance: CALCIUM CITRATE
     Indication: Primary hypoparathyroidism
     Dosage: 600 MG TWICE DAILY
  2. DEXTROSE [Suspect]
     Active Substance: DEXTROSE\DEXTROSE MONOHYDRATE
     Indication: Primary hypoparathyroidism
     Dosage: 20ML OF CALCIUM GLUCONATE 10 PERCENTAGE DILUTED IN 50ML OF DEXTROSE INFUSED OVER 10 MINUTES
     Route: 042
  3. MIDAZOLAM [Suspect]
     Active Substance: MIDAZOLAM
     Indication: Primary familial brain calcification
  4. VALPROATE SODIUM [Suspect]
     Active Substance: VALPROATE SODIUM
     Indication: Primary familial brain calcification
     Dosage: 500MG TWICE DAILY
     Route: 048
  5. VITAMIN D3 [Suspect]
     Active Substance: CHOLECALCIFEROL
     Indication: Primary hypoparathyroidism
     Dosage: 50000 ONCE WEEKLY FOR 6 WEEKS
  6. DIVALPROEX SODIUM [Suspect]
     Active Substance: DIVALPROEX SODIUM
     Indication: Primary familial brain calcification
     Dosage: 500 MG
  7. CALCIUM GLUCONATE [Suspect]
     Active Substance: CALCIUM GLUCONATE
     Indication: Primary hypoparathyroidism
     Dosage: CALCIUM GLUCONATE 20ML OF CALCIUM GLUCONATE 10% DILUTED IN 50ML OF DEXTROSE
     Route: 042
  8. VALPROATE SODIUM [Suspect]
     Active Substance: VALPROATE SODIUM
     Indication: Primary familial brain calcification

REACTIONS (4)
  - Treatment failure [Recovering/Resolving]
  - Blood calcium decreased [Recovering/Resolving]
  - Generalised tonic-clonic seizure [Recovering/Resolving]
  - Disease recurrence [Recovering/Resolving]
